FAERS Safety Report 13712595 (Version 3)
Quarter: 2017Q3

REPORT INFORMATION
  Report Type: Spontaneous
  Country: US (occurrence: US)
  Receive Date: 20170703
  Receipt Date: 20170913
  Transmission Date: 20171127
  Serious: Yes (Disabling)
  Sender: FDA-Public Use
  Company Number: US-JNJFOC-20170615073

PATIENT
  Sex: Male
  Weight: 112.04 kg

DRUGS (3)
  1. STELARA [Suspect]
     Active Substance: USTEKINUMAB
     Indication: CROHN^S DISEASE
     Dosage: INTRAVENOUS (IV) INFUSION
     Route: 042
     Dates: start: 20170404, end: 20170404
  2. STELARA [Suspect]
     Active Substance: USTEKINUMAB
     Indication: CROHN^S DISEASE
     Dosage: FIRST SUBCUTANESOUS (SC) MAINTENANCE INJECTION
     Route: 042
     Dates: end: 20170604
  3. TESTOSTERONE. [Concomitant]
     Active Substance: TESTOSTERONE
     Dosage: DOSE: 1 INCH CREAM
     Route: 065

REACTIONS (1)
  - Nasopharyngitis [Recovering/Resolving]
